FAERS Safety Report 16387073 (Version 1)
Quarter: 2019Q2

REPORT INFORMATION
  Report Type: Spontaneous
  Country: PT (occurrence: PT)
  Receive Date: 20190604
  Receipt Date: 20190604
  Transmission Date: 20190711
  Serious: Yes (Other)
  Sender: FDA-Public Use
  Company Number: PT-ALKEM LABORATORIES LIMITED-PT-ALKEM-2019-02713

PATIENT
  Sex: Female

DRUGS (6)
  1. COLCHICINE. [Suspect]
     Active Substance: COLCHICINE
     Indication: MULTIPLE SCLEROSIS
     Dosage: 0.6 MG, QD
     Route: 065
  2. MYCOPHENOLATE MOFETIL. [Suspect]
     Active Substance: MYCOPHENOLATE MOFETIL
     Indication: MULTIPLE SCLEROSIS
     Dosage: 1.5-2 G, QD
     Route: 065
  3. MYCOPHENOLATE MOFETIL. [Suspect]
     Active Substance: MYCOPHENOLATE MOFETIL
     Indication: URTICARIAL VASCULITIS
  4. HYDROXYCHLOROQUINE [Suspect]
     Active Substance: HYDROXYCHLOROQUINE
     Indication: URTICARIAL VASCULITIS
  5. COLCHICINE. [Suspect]
     Active Substance: COLCHICINE
     Indication: URTICARIAL VASCULITIS
  6. HYDROXYCHLOROQUINE [Suspect]
     Active Substance: HYDROXYCHLOROQUINE
     Indication: MULTIPLE SCLEROSIS
     Dosage: 400 MG, QD
     Route: 065

REACTIONS (2)
  - Disease progression [Unknown]
  - Therapy non-responder [Unknown]
